FAERS Safety Report 4691208-9 (Version None)
Quarter: 2005Q2

REPORT INFORMATION
  Report Type: 
  Country: None (occurrence: None)
  Receive Date: 20050610
  Receipt Date: 20050525
  Transmission Date: 20051028
  Serious: Yes (Death, Other)
  Sender: FDA-Public Use
  Company Number: 2005BI004740

PATIENT
  Sex: Female

DRUGS (4)
  1. AVONEX [Suspect]
     Indication: MULTIPLE SCLEROSIS
     Dosage: QW;IM
     Route: 030
     Dates: start: 20030101
  2. NATALIZUMAB [Suspect]
     Indication: MULTIPLE SCLEROSIS
     Dosage: QM;IV
     Route: 042
     Dates: start: 20050101, end: 20050101
  3. CYTOXAN [Concomitant]
  4. BETASERON [Concomitant]

REACTIONS (7)
  - BLOOD COUNT ABNORMAL [None]
  - DRUG INTOLERANCE [None]
  - MALAISE [None]
  - NONSPECIFIC REACTION [None]
  - ROAD TRAFFIC ACCIDENT [None]
  - THERAPY NON-RESPONDER [None]
  - WHITE BLOOD CELL COUNT ABNORMAL [None]
